FAERS Safety Report 5092300-X (Version None)
Quarter: 2006Q3

REPORT INFORMATION
  Report Type: 
  Country: None (occurrence: None)
  Receive Date: 20060727
  Receipt Date: 20060619
  Transmission Date: 20061208
  Serious: Yes (Other)
  Sender: FDA-Public Use
  Company Number: 2006079817

PATIENT
  Age: 37 Year
  Sex: Female
  Weight: 61.1449 kg

DRUGS (4)
  1. LYRICA [Suspect]
     Indication: SWELLING FACE
     Dosage: 150 MG (50 MG, 3 IN 1 D), UNKNOWN
     Dates: start: 20060615
  2. PROZAC [Concomitant]
  3. ESTROSTEP [Concomitant]
  4. DEXAMFETAMINE SULFATE (DEXAMFETAMINE SULFATE) [Concomitant]

REACTIONS (2)
  - OEDEMA PERIPHERAL [None]
  - WEIGHT INCREASED [None]
